FAERS Safety Report 16642130 (Version 1)
Quarter: 2019Q3

REPORT INFORMATION
  Report Type: Spontaneous
  Country: AU (occurrence: AU)
  Receive Date: 20190729
  Receipt Date: 20190729
  Transmission Date: 20191004
  Serious: Yes (Life-Threatening, Other)
  Sender: FDA-Public Use
  Company Number: AU-SANOFI-SYNTHELABO-A01200603940

PATIENT
  Age: 57 Year
  Sex: Male

DRUGS (13)
  1. DEXAMETHASONE. [Concomitant]
     Active Substance: DEXAMETHASONE
     Dosage: 4 MG,UNK
     Route: 065
  2. LEUCOVORIN [FOLINIC ACID] [Concomitant]
     Active Substance: LEUCOVORIN
     Dosage: UNK
  3. ELOXATIN [Suspect]
     Active Substance: OXALIPLATIN
     Dosage: 150 MG,QOW
     Route: 041
     Dates: start: 20051130, end: 20051130
  4. ELOXATIN [Suspect]
     Active Substance: OXALIPLATIN
     Dosage: 150 MG, QOW
     Route: 041
     Dates: start: 20060523, end: 20060523
  5. FLUOROURACIL. [Suspect]
     Active Substance: FLUOROURACIL
     Dosage: UNK UNK,QOW
     Route: 042
     Dates: start: 20060314, end: 20060314
  6. CALCIUM LEVOFOLINATE [Concomitant]
     Active Substance: LEVOLEUCOVORIN CALCIUM
     Dosage: UNK UNK,QOW
     Route: 042
     Dates: start: 20060314
  7. FLUOROURACIL. [Suspect]
     Active Substance: FLUOROURACIL
     Dosage: UNK UNK, QOW
     Route: 042
     Dates: start: 20051130, end: 20051130
  8. GLUTAMINE [Concomitant]
     Active Substance: GLUTAMINE
     Indication: PROPHYLAXIS
     Dosage: 1 DF, QD
     Route: 048
     Dates: start: 20051130
  9. RANITIDINE. [Concomitant]
     Active Substance: RANITIDINE
     Dosage: 50 MG,UNK
     Route: 065
  10. ELOXATIN [Suspect]
     Active Substance: OXALIPLATIN
     Indication: METASTASES TO LIVER
     Dosage: 150 MG,QOW
     Route: 041
     Dates: start: 20060314, end: 20060314
  11. CLARATYNE [Concomitant]
     Active Substance: LORATADINE
     Dosage: 10 MG,UNK
     Route: 048
  12. ANZEMET [Concomitant]
     Active Substance: DOLASETRON MESYLATE
     Dosage: 100 MG,UNK
     Route: 065
  13. WARFARIN SODIUM. [Concomitant]
     Active Substance: WARFARIN SODIUM
     Indication: PROPHYLAXIS
     Dosage: 1 MG,QD
     Route: 048
     Dates: start: 20051120

REACTIONS (3)
  - Chest discomfort [Recovered/Resolved]
  - Flushing [Recovered/Resolved]
  - Erythema [Recovered/Resolved]

NARRATIVE: CASE EVENT DATE: 20060314
